FAERS Safety Report 6137912-7 (Version None)
Quarter: 2009Q1

REPORT INFORMATION
  Report Type: 
  Country: None (occurrence: None)
  Receive Date: 20090327
  Receipt Date: 20090316
  Transmission Date: 20090719
  Serious: Yes (Other)
  Sender: FDA-Public Use
  Company Number: 232126K09USA

PATIENT
  Age: 54 Year
  Sex: Female
  Weight: 67 kg

DRUGS (8)
  1. REBIF [Suspect]
     Indication: MULTIPLE SCLEROSIS
     Dosage: 44 MCG, 3 IN 1 WEEKS, SUBCUTANEOUS
     Route: 058
     Dates: start: 20061106
  2. STEROIDS (CORTICOSTEROIDS) [Suspect]
  3. LIPITOR [Concomitant]
  4. ZETIA [Concomitant]
  5. LOVAZA (FISH OIL) [Concomitant]
  6. OSCAL (CALCIUM CARBONATE) [Concomitant]
  7. MULTI VITAMIN (MULTIVITAMIN  /00831701/) [Concomitant]
  8. VITAMIN D [Concomitant]

REACTIONS (1)
  - OSTEONECROSIS [None]
